FAERS Safety Report 4520215-1 (Version None)
Quarter: 2005Q1

REPORT INFORMATION
  Report Type: 
  Country: None (occurrence: None)
  Receive Date: 20041022
  Receipt Date: 20040719
  Transmission Date: 20050727
  Serious: No
  Sender: FDA-Public Use
  Company Number: 2004224549US

PATIENT
  Age: 72 Year
  Sex: Male
  Weight: 103.4 kg

DRUGS (7)
  1. INSPRA [Suspect]
     Indication: CARDIAC DISORDER
     Dosage: 25 MG, QD, ORAL
     Route: 048
     Dates: start: 20040524
  2. HUMALOG [Concomitant]
  3. LIPITOR [Concomitant]
  4. ASPIRIN [Concomitant]
  5. COZAAR [Concomitant]
  6. PRILOSEC [Concomitant]
  7. COENZYME Q10 [Concomitant]

REACTIONS (2)
  - OEDEMA [None]
  - OEDEMA PERIPHERAL [None]
